FAERS Safety Report 10889778 (Version 1)
Quarter: 2015Q1

REPORT INFORMATION
  Report Type: Report from Study
  Country: CA (occurrence: CA)
  Receive Date: 20150305
  Receipt Date: 20150305
  Transmission Date: 20150721
  Serious: Yes (Hospitalization)
  Sender: FDA-Public Use
  Company Number: CA-AMGEN-CANSL2015018680

PATIENT
  Age: 90 Year
  Sex: Female

DRUGS (2)
  1. PROLIA [Suspect]
     Active Substance: DENOSUMAB
     Indication: OSTEOPOROSIS
     Dosage: 60 MG/ML, UNK
     Route: 058
     Dates: start: 20121227
  2. ARANESP [Concomitant]
     Active Substance: DARBEPOETIN ALFA
     Indication: RENAL IMPAIRMENT
     Dosage: UNK, Q3WK
     Route: 065

REACTIONS (3)
  - Pneumonia [Recovered/Resolved]
  - Dyspnoea [Unknown]
  - Pleural effusion [Not Recovered/Not Resolved]

NARRATIVE: CASE EVENT DATE: 20141227
